FAERS Safety Report 17591885 (Version 1)
Quarter: 2020Q1

REPORT INFORMATION
  Report Type: Spontaneous
  Country: CH (occurrence: CH)
  Receive Date: 20200327
  Receipt Date: 20200327
  Transmission Date: 20200409
  Serious: Yes (Other)
  Sender: FDA-Public Use
  Company Number: CH-SUN PHARMACEUTICAL INDUSTRIES LTD-2020RR-241828

PATIENT
  Age: 73 Year
  Sex: Male

DRUGS (4)
  1. ERTAPENEM. [Suspect]
     Active Substance: ERTAPENEM SODIUM
     Indication: ANTIBIOTIC THERAPY
     Dosage: UNK
     Route: 065
  2. METRONIDAZOLE. [Suspect]
     Active Substance: METRONIDAZOLE
     Indication: ANTIBIOTIC THERAPY
     Dosage: UNK
     Route: 065
  3. CEFTRIAXONE. [Suspect]
     Active Substance: CEFTRIAXONE
     Indication: ANTIBIOTIC THERAPY
     Dosage: UNK
     Route: 065
  4. CLINDAMYCIN. [Suspect]
     Active Substance: CLINDAMYCIN
     Indication: ANTIBIOTIC THERAPY
     Dosage: UNK
     Route: 065

REACTIONS (9)
  - Decreased appetite [Recovering/Resolving]
  - Decreased interest [Recovering/Resolving]
  - Weight decreased [Recovering/Resolving]
  - Vitamin B1 deficiency [Recovering/Resolving]
  - Folate deficiency [Recovering/Resolving]
  - Vitamin A deficiency [Recovering/Resolving]
  - Therapeutic product ineffective [Recovering/Resolving]
  - Magnesium deficiency [Recovering/Resolving]
  - Nausea [Recovering/Resolving]
